FAERS Safety Report 22324229 (Version 2)
Quarter: 2025Q2

REPORT INFORMATION
  Report Type: Spontaneous
  Country: FI (occurrence: None)
  Receive Date: 20230516
  Receipt Date: 20250516
  Transmission Date: 20250717
  Serious: Yes (Death, Other)
  Sender: INCYTE
  Company Number: FI-INCYTE CORPORATION-2023IN005020

PATIENT
  Age: 34 Year

DRUGS (10)
  1. PEMAZYRE [Suspect]
     Active Substance: PEMIGATINIB
     Indication: Cholangiocarcinoma
     Dosage: 13.5 MILLIGRAM, QD (ON AN INTERMITTENT DOSING SCHEDULE (2 WEEKS ON FOLLOWED BY 1 WEEK OFF, PER LABELED INDICATION))
     Route: 065
  2. PEMAZYRE [Suspect]
     Active Substance: PEMIGATINIB
     Dosage: 9 MILLIGRAM, QD
     Route: 065
  3. PEMAZYRE [Suspect]
     Active Substance: PEMIGATINIB
     Dosage: 13.5 MILLIGRAM, QD
     Route: 065
  4. OXYCODONE [Concomitant]
     Active Substance: OXYCODONE
     Indication: Product used for unknown indication
     Dosage: 100 MILLIGRAM X2
     Route: 065
  5. ONDANSETRON [Concomitant]
     Active Substance: ONDANSETRON
     Indication: Product used for unknown indication
     Dosage: 4 MILLIGRAM X 2
     Route: 065
  6. DEXAMETHASONE [Concomitant]
     Active Substance: DEXAMETHASONE
     Indication: Product used for unknown indication
     Dosage: 1 MILLIGRAM X 1
     Route: 065
  7. OLANZAPINE [Concomitant]
     Active Substance: OLANZAPINE
     Indication: Product used for unknown indication
     Dosage: 5 MILLIGRAM X 1
     Route: 065
  8. POLYETHYLENE GLYCOLS [Concomitant]
     Active Substance: POLYETHYLENE GLYCOLS
     Indication: Product used for unknown indication
     Route: 065
  9. OXALIPLATIN [Concomitant]
     Active Substance: OXALIPLATIN
     Indication: Cholangiocarcinoma
     Route: 065
  10. FLUOROURACIL [Concomitant]
     Active Substance: FLUOROURACIL
     Indication: Cholangiocarcinoma
     Route: 065

REACTIONS (18)
  - Death [Fatal]
  - Cholangiocarcinoma [Unknown]
  - Anxiety [Unknown]
  - Pain [Unknown]
  - Weight increased [Unknown]
  - Therapy partial responder [Unknown]
  - General physical health deterioration [Unknown]
  - Nail deformation [Unknown]
  - Nail growth abnormal [Unknown]
  - Disease progression [Unknown]
  - Dysgeusia [Unknown]
  - Dry mouth [Unknown]
  - Hyperphosphataemia [Unknown]
  - Nausea [Unknown]
  - Fatigue [Unknown]
  - Stomatitis [Unknown]
  - Dry skin [Unknown]
  - Blood phosphorus decreased [Unknown]
